FAERS Safety Report 5919761-5 (Version None)
Quarter: 2008Q4

REPORT INFORMATION
  Report Type: 
  Country: None (occurrence: None)
  Receive Date: 20081015
  Receipt Date: 20081006
  Transmission Date: 20090506
  Serious: Yes (Hospitalization, Other)
  Sender: FDA-Public Use
  Company Number: JP-PFIZER INC-2008016611

PATIENT
  Sex: Female

DRUGS (6)
  1. ZOLOFT [Suspect]
     Indication: DEPRESSION
     Route: 048
     Dates: start: 20080207, end: 20080220
  2. ZOLOFT [Suspect]
     Indication: ANXIETY
  3. PEROSPIRONE HYDROCHLORIDE [Concomitant]
     Route: 048
     Dates: start: 20051201, end: 20080204
  4. EXCEGRAN [Concomitant]
     Route: 048
     Dates: start: 20060801
  5. TOPIRAMATE [Concomitant]
     Route: 048
  6. RISPERDAL [Concomitant]
     Route: 048
     Dates: start: 20080220

REACTIONS (4)
  - ACTIVATION SYNDROME [None]
  - DELIRIUM [None]
  - IDEAS OF REFERENCE [None]
  - SELF INJURIOUS BEHAVIOUR [None]
